FAERS Safety Report 22166141 (Version 1)
Quarter: 2023Q1

REPORT INFORMATION
  Report Type: Spontaneous
  Country: US (occurrence: None)
  Receive Date: 20230331
  Receipt Date: 20230331
  Transmission Date: 20230418
  Serious: No
  Sender: FDA-Public Use
  Company Number: None

PATIENT
  Age: 69 Year
  Sex: Female
  Weight: 90.72 kg

DRUGS (1)
  1. MAGNESIUM CITRATE [Suspect]
     Active Substance: MAGNESIUM CITRATE
     Indication: Constipation
     Dates: start: 19991104, end: 20220724

REACTIONS (6)
  - Headache [None]
  - Pain [None]
  - Chills [None]
  - Recalled product administered [None]
  - Product contamination microbial [None]
  - Influenza [None]

NARRATIVE: CASE EVENT DATE: 20220724
